FAERS Safety Report 10812287 (Version 1)
Quarter: 2015Q1

REPORT INFORMATION
  Report Type: Spontaneous
  Country: US (occurrence: None)
  Receive Date: 20150212
  Receipt Date: 20150212
  Transmission Date: 20150721
  Serious: Yes (Life-Threatening)
  Sender: FDA-Public Use
  Company Number: None

PATIENT
  Age: 6 Year
  Sex: Male
  Weight: 27.22 kg

DRUGS (2)
  1. PAXIL [Suspect]
     Active Substance: PAROXETINE HYDROCHLORIDE
     Indication: ANXIETY
     Dosage: 1.5 PILLS
     Route: 048
     Dates: start: 20150105, end: 20150209
  2. PAXIL [Suspect]
     Active Substance: PAROXETINE HYDROCHLORIDE
     Indication: SENSORY INTEGRATIVE DYSFUNCTION
     Dosage: 1.5 PILLS
     Route: 048
     Dates: start: 20150105, end: 20150209

REACTIONS (2)
  - Suicidal behaviour [None]
  - Aggression [None]

NARRATIVE: CASE EVENT DATE: 20150209
